FAERS Safety Report 14149847 (Version 2)
Quarter: 2017Q4

REPORT INFORMATION
  Report Type: Spontaneous
  Country: US (occurrence: US)
  Receive Date: 20171101
  Receipt Date: 20171103
  Transmission Date: 20180321
  Serious: Yes (Other)
  Sender: FDA-Public Use
  Company Number: US-LUNDBECK-DKLU2038976

PATIENT
  Age: 89 Year
  Sex: Male

DRUGS (2)
  1. NORTHERA [Suspect]
     Active Substance: DROXIDOPA
     Indication: AUTONOMIC NEUROPATHY
     Dosage: SCHEDULE C FIXED DOSE
     Route: 065
     Dates: start: 20170115
  2. NORTHERA [Suspect]
     Active Substance: DROXIDOPA
     Indication: ORTHOSTATIC HYPOTENSION
     Route: 048
     Dates: start: 201710

REACTIONS (9)
  - Gait disturbance [Unknown]
  - Feeling drunk [Unknown]
  - Pain [Unknown]
  - Urinary incontinence [Unknown]
  - Blood pressure systolic decreased [Unknown]
  - Blood pressure systolic increased [Unknown]
  - Spinal fracture [Unknown]
  - Dizziness [Unknown]
  - Fall [Unknown]

NARRATIVE: CASE EVENT DATE: 201710
